FAERS Safety Report 5696065-X (Version None)
Quarter: 2008Q2

REPORT INFORMATION
  Report Type: 
  Country: None (occurrence: None)
  Receive Date: 20080407
  Receipt Date: 20080403
  Transmission Date: 20081010
  Serious: Yes (Other)
  Sender: FDA-Public Use
  Company Number: B0508655A

PATIENT
  Age: 49 Year
  Sex: Male
  Weight: 72 kg

DRUGS (8)
  1. PAXIL [Suspect]
     Indication: DEPRESSION
     Dosage: 20MG PER DAY
     Route: 048
  2. MEILAX [Suspect]
     Indication: DEPRESSION
     Dosage: 1MG TWICE PER DAY
     Route: 048
  3. DOGMATYL [Suspect]
     Indication: DEPRESSION
     Dosage: 50MG TWICE PER DAY
     Route: 048
  4. ROHYPNOL [Suspect]
     Indication: DEPRESSION
     Dosage: 1MG THREE TIMES PER DAY
     Route: 048
  5. HERBESSER R [Suspect]
     Indication: ANGINA PECTORIS
     Dosage: 100MG TWICE PER DAY
     Route: 048
     Dates: start: 20071013
  6. TOFRANIL [Suspect]
     Indication: DEPRESSION
     Dosage: 10MG TWICE PER DAY
     Route: 048
  7. SIGMART [Concomitant]
     Indication: ANGINA PECTORIS
     Dosage: 10MG PER DAY
     Route: 048
     Dates: start: 20071013
  8. UNKNOWN DRUG [Concomitant]
     Indication: ANGINA PECTORIS
     Route: 060
     Dates: start: 20071013

REACTIONS (2)
  - ANGINA PECTORIS [None]
  - HYPOGLYCAEMIA [None]
